FAERS Safety Report 11089134 (Version 1)
Quarter: 2015Q2

REPORT INFORMATION
  Report Type: Spontaneous
  Country: IT (occurrence: IT)
  Receive Date: 20150505
  Receipt Date: 20150505
  Transmission Date: 20150821
  Serious: Yes (Death, Hospitalization)
  Sender: FDA-Public Use
  Company Number: PHHY2015IT050460

PATIENT
  Age: 65 Year
  Sex: Female

DRUGS (22)
  1. VELCADE [Suspect]
     Active Substance: BORTEZOMIB
     Dosage: 1.3 MG/M2, CYCLIC
     Route: 065
     Dates: start: 20120709, end: 20120729
  2. VELCADE [Suspect]
     Active Substance: BORTEZOMIB
     Dosage: 1.3 MG/M2, CYCLIC
     Route: 065
     Dates: start: 20130705, end: 20130920
  3. DEXAMETHASONE SODIUM PHOSPHATE. [Suspect]
     Active Substance: DEXAMETHASONE SODIUM PHOSPHATE
     Dosage: LINE 1, CYCLE 2, CYCLIC
     Route: 065
     Dates: start: 20120618, end: 20120706
  4. DEXAMETHASONE SODIUM PHOSPHATE. [Suspect]
     Active Substance: DEXAMETHASONE SODIUM PHOSPHATE
     Dosage: LINE 1, CYCLE 7, CYCLIC
     Route: 065
     Dates: start: 20130108, end: 20130109
  5. VELCADE [Suspect]
     Active Substance: BORTEZOMIB
     Dosage: 1.3 MG/M2, CYCLIC
     Route: 065
     Dates: start: 20130927, end: 20131011
  6. DEXAMETHASONE SODIUM PHOSPHATE. [Suspect]
     Active Substance: DEXAMETHASONE SODIUM PHOSPHATE
     Dosage: LINE 1, CYCLE 4, CYCLIC
     Route: 065
     Dates: start: 20120820, end: 20120830
  7. DEXAMETHASONE SODIUM PHOSPHATE. [Suspect]
     Active Substance: DEXAMETHASONE SODIUM PHOSPHATE
     Dosage: LINE 1, CYCLE 6, CYCLIC
     Route: 065
     Dates: start: 20121220, end: 20121231
  8. VELCADE [Suspect]
     Active Substance: BORTEZOMIB
     Dosage: 1.3 MG/M2, CYCLIC
     Route: 065
     Dates: start: 20120618, end: 20120706
  9. DEXAMETHASONE SODIUM PHOSPHATE. [Suspect]
     Active Substance: DEXAMETHASONE SODIUM PHOSPHATE
     Dosage: LINE 1, CYCLE 3, CYCLIC
     Route: 065
     Dates: start: 20120709, end: 20120729
  10. BENDAMUSTINE HYDROCHLORIDE [Suspect]
     Active Substance: BENDAMUSTINE HYDROCHLORIDE
     Indication: PLASMA CELL MYELOMA
     Dosage: LINE 2 CYCLE 1, ONCE DAILY
     Route: 065
     Dates: start: 20130108, end: 20130109
  11. VELCADE [Suspect]
     Active Substance: BORTEZOMIB
     Indication: PLASMA CELL MYELOMA
     Dosage: 1.3 MG/M2, CYCLIC
     Route: 065
     Dates: start: 20120502, end: 20120522
  12. VELCADE [Suspect]
     Active Substance: BORTEZOMIB
     Dosage: 1.3 MG/M2, CYCLIC
     Route: 065
     Dates: start: 20120820, end: 20120830
  13. DEXAMETHASONE SODIUM PHOSPHATE. [Suspect]
     Active Substance: DEXAMETHASONE SODIUM PHOSPHATE
     Dosage: LINE 4, CYCLE 1, CYCLIC
     Route: 065
     Dates: start: 20130705, end: 20130920
  14. DOXORUBICIN HYDROCHLORIDE. [Suspect]
     Active Substance: DOXORUBICIN HYDROCHLORIDE
     Indication: PLASMA CELL MYELOMA
     Dosage: LINE 4, CYCLE 1, CYCLIC
     Route: 042
     Dates: start: 20130705, end: 20130920
  15. BENDAMUSTINE HYDROCHLORIDE [Suspect]
     Active Substance: BENDAMUSTINE HYDROCHLORIDE
     Dosage: LINE 5, CYCLE1, CYCLIC
     Route: 065
     Dates: start: 20130927, end: 20131011
  16. VELCADE [Suspect]
     Active Substance: BORTEZOMIB
     Dosage: 1.3 MG/M2, CYCLIC
     Route: 065
     Dates: start: 20120910, end: 20120929
  17. DEXAMETHASONE SODIUM PHOSPHATE. [Suspect]
     Active Substance: DEXAMETHASONE SODIUM PHOSPHATE
     Dosage: LINE 1, CYCLE 4, CYCLIC
     Route: 065
     Dates: start: 20120802, end: 20120819
  18. DEXAMETHASONE SODIUM PHOSPHATE. [Suspect]
     Active Substance: DEXAMETHASONE SODIUM PHOSPHATE
     Dosage: LINE 5, CYCLE 1, CYCLIC
     Route: 065
     Dates: start: 20130927, end: 20131011
  19. VELCADE [Suspect]
     Active Substance: BORTEZOMIB
     Dosage: 1.3 MG/M2, CYCLIC
     Route: 065
     Dates: start: 20120802, end: 20120819
  20. VELCADE [Suspect]
     Active Substance: BORTEZOMIB
     Dosage: 1.3 MG/M2, CYCLIC
     Route: 065
     Dates: start: 20121220, end: 20121231
  21. DEXAMETHASONE SODIUM PHOSPHATE. [Suspect]
     Active Substance: DEXAMETHASONE SODIUM PHOSPHATE
     Indication: PLASMA CELL MYELOMA
     Dosage: LINE 1, CYCLE 1, CYCLIC
     Route: 065
     Dates: start: 20120502, end: 20120522
  22. DEXAMETHASONE SODIUM PHOSPHATE. [Suspect]
     Active Substance: DEXAMETHASONE SODIUM PHOSPHATE
     Dosage: LINE 1, CYCLE 5, CYCLIC
     Route: 065
     Dates: start: 20120910, end: 20120929

REACTIONS (1)
  - Pathological fracture [Fatal]

NARRATIVE: CASE EVENT DATE: 20131009
